FAERS Safety Report 6661524-X (Version None)
Quarter: 2010Q1

REPORT INFORMATION
  Report Type: 
  Country: None (occurrence: None)
  Receive Date: 20100331
  Receipt Date: 20100329
  Transmission Date: 20100710
  Serious: Yes (Hospitalization)
  Sender: FDA-Public Use
  Company Number: JP-BRISTOL-MYERS SQUIBB COMPANY-15039969

PATIENT

DRUGS (1)
  1. CISPLATIN [Suspect]
     Indication: CERVIX CARCINOMA
     Route: 042
     Dates: start: 20100317, end: 20100317

REACTIONS (4)
  - DECREASED APPETITE [None]
  - GASTRITIS [None]
  - NAUSEA [None]
  - VOMITING [None]
